FAERS Safety Report 11400862 (Version 2)
Quarter: 2015Q3

REPORT INFORMATION
  Report Type: Spontaneous
  Country: CN (occurrence: CN)
  Receive Date: 20150820
  Receipt Date: 20150831
  Transmission Date: 20151125
  Serious: Yes (Death, Other)
  Sender: FDA-Public Use
  Company Number: CN-BAXTER-2015BAX044695

PATIENT
  Age: 53 Year
  Sex: Male
  Weight: 115 kg

DRUGS (6)
  1. URAPIDIL [Suspect]
     Active Substance: URAPIDIL
     Indication: HYPERTENSION
     Route: 042
  2. ALBUMIN [Suspect]
     Active Substance: ALBUMIN (HUMAN)
     Indication: BRAIN OEDEMA
     Route: 065
  3. LEVOTHYROXINE SODIUM. [Suspect]
     Active Substance: LEVOTHYROXINE SODIUM
     Dosage: GRADUALLY INCREASED DOSE
     Route: 048
  4. LEVOTHYROXINE SODIUM. [Suspect]
     Active Substance: LEVOTHYROXINE SODIUM
     Indication: HYPOTHYROIDISM
     Route: 048
  5. 20% MANNITOL INJECTION [Suspect]
     Active Substance: MANNITOL
     Indication: BRAIN OEDEMA
     Route: 042
  6. TISSUE PLASMINOGEN ACTIVATOR, RECOMBINANT [Suspect]
     Active Substance: ALTEPLASE
     Indication: ISCHAEMIC STROKE
     Dosage: 3 HOUR AFTER ONSET
     Route: 065

REACTIONS (5)
  - Lung infection [Unknown]
  - Renal impairment [Unknown]
  - Electrolyte imbalance [Unknown]
  - Hepatic function abnormal [Unknown]
  - Death [Fatal]
